FAERS Safety Report 9203961 (Version 1)
Quarter: 2013Q1

REPORT INFORMATION
  Report Type: Spontaneous
  Country: US (occurrence: None)
  Receive Date: 20120709
  Receipt Date: 20120709
  Transmission Date: 20140127
  Serious: No
  Sender: FDA-Public Use
  Company Number: 2012HGS-003435

PATIENT
  Age: 46 Year
  Sex: Female
  Weight: 68.04 kg

DRUGS (9)
  1. BENLYSTA [Suspect]
     Dosage: 1 IN 28 D
     Route: 041
     Dates: start: 20120322
  2. MOBIC (MELOXICAM) (MELOXICAM) (MELOXICAM) [Concomitant]
  3. SYNTHROID (LEVOTHYROXINE SODIUM) (LEVOTHYROXINE SODIUM) [Concomitant]
  4. ZYRTEC (CETIRIZINE HYDROCHLORIDE) (CETIRIZINE HYDROCHLORIDE) [Concomitant]
  5. ASPIRIN (ACETYLSALICYLIC ACID) (ACETYLIC ACID) [Concomitant]
  6. MULTIVITAMIN (VIGRAN) (ERGOCALCIFERON, ASCORBIC ACID , PYRIDOXINE HYDROCHLORIDE, THIAMINE HYDROCHLORIDE, RETINOL, RIBOFLAVIN, NICOTINAMIDE, CALCIUM PANTOTHENATE) [Concomitant]
  7. PREDNISONE (PREDNISONE) (PREDNISONE) [Concomitant]
  8. PREVACID (LANSOPRAZOLE) (LANSOPRAZOLE) [Concomitant]
  9. RESTASIS (CICLOSPORIN) (CICLOSPORIN) [Concomitant]

REACTIONS (1)
  - Headache [None]
